FAERS Safety Report 5714971-4 (Version None)
Quarter: 2008Q2

REPORT INFORMATION
  Report Type: 
  Country: None (occurrence: None)
  Receive Date: 20080423
  Receipt Date: 20080416
  Transmission Date: 20081010
  Serious: Yes (Hospitalization)
  Sender: FDA-Public Use
  Company Number: JP-SANOFI-SYNTHELABO-A01200804257

PATIENT
  Sex: Male

DRUGS (4)
  1. AVASTIN [Suspect]
     Route: 041
     Dates: start: 20080313, end: 20080313
  2. ISOVORIN [Suspect]
     Route: 041
     Dates: start: 20080313, end: 20080313
  3. FLUOROURACIL [Suspect]
     Route: 042
     Dates: start: 20080301, end: 20080301
  4. ELPLAT [Suspect]
     Indication: COLON CANCER METASTATIC
     Route: 041
     Dates: start: 20080313, end: 20080313

REACTIONS (1)
  - GASTRIC ULCER [None]
